FAERS Safety Report 17518781 (Version 1)
Quarter: 2020Q1

REPORT INFORMATION
  Report Type: Spontaneous
  Country: CZ (occurrence: CZ)
  Receive Date: 20200309
  Receipt Date: 20200309
  Transmission Date: 20200409
  Serious: Yes (Hospitalization, Other)
  Sender: FDA-Public Use
  Company Number: CZ-BAYER-2020-034343

PATIENT
  Sex: Male

DRUGS (5)
  1. ENZALUTAMIDE [Concomitant]
     Active Substance: ENZALUTAMIDE
     Dosage: UNK
     Dates: start: 20190911
  2. CABAZITAXEL [Concomitant]
     Active Substance: CABAZITAXEL
  3. XGEVA [Concomitant]
     Active Substance: DENOSUMAB
     Dosage: UNK
     Dates: start: 201609
  4. XOFIGO [Suspect]
     Active Substance: RADIUM RA-223 DICHLORIDE
     Indication: PROSTATE CANCER METASTATIC
     Dosage: 6 DOSES
     Route: 042
     Dates: start: 201610, end: 201703
  5. DOCETAXEL. [Concomitant]
     Active Substance: DOCETAXEL

REACTIONS (4)
  - Pain [None]
  - Prostate cancer metastatic [None]
  - Pre-existing condition improved [None]
  - Pancytopenia [Recovered/Resolved]
